FAERS Safety Report 23539558 (Version 1)
Quarter: 2024Q1

REPORT INFORMATION
  Report Type: Spontaneous
  Country: US (occurrence: US)
  Receive Date: 20240219
  Receipt Date: 20240219
  Transmission Date: 20240410
  Serious: No
  Sender: FDA-Public Use
  Company Number: US-CTI BIOPHARMA-2024US04436

PATIENT

DRUGS (5)
  1. VONJO [Suspect]
     Active Substance: PACRITINIB
     Indication: 5q minus syndrome
     Dosage: 200 MG, BID
     Route: 048
  2. FUROSEMIDE [Concomitant]
     Active Substance: FUROSEMIDE
  3. LOPERAMIDE [Concomitant]
     Active Substance: LOPERAMIDE
  4. VITAMIN E [Concomitant]
     Active Substance: .ALPHA.-TOCOPHEROL
  5. MEMANTINE [Concomitant]
     Active Substance: MEMANTINE

REACTIONS (3)
  - Decreased appetite [Unknown]
  - Weight decreased [Unknown]
  - Off label use [Unknown]
